FAERS Safety Report 9379952 (Version 1)
Quarter: 2013Q3

REPORT INFORMATION
  Report Type: Report from Study
  Country: CA (occurrence: CA)
  Receive Date: 20130702
  Receipt Date: 20130702
  Transmission Date: 20140515
  Serious: Yes (Other)
  Sender: FDA-Public Use
  Company Number: CA-JNJFOC-20130617890

PATIENT
  Age: 57 Year
  Sex: Female
  Weight: 51 kg

DRUGS (5)
  1. REMICADE [Suspect]
     Indication: CROHN^S DISEASE
     Dosage: 55 INFUSION
     Route: 042
     Dates: start: 20130514
  2. REMICADE [Suspect]
     Indication: CROHN^S DISEASE
     Route: 042
     Dates: start: 20060321
  3. METHOTREXATE [Concomitant]
     Route: 065
  4. WARFARIN [Concomitant]
     Route: 065
  5. HRT [Concomitant]
     Route: 065

REACTIONS (3)
  - Heart rate increased [Unknown]
  - Hypertension [Unknown]
  - Thrombosis in device [Unknown]
